FAERS Safety Report 9511578 (Version 1)
Quarter: 2013Q1

REPORT INFORMATION
  Report Type: Spontaneous
  Country: US (occurrence: None)
  Receive Date: 20130305
  Receipt Date: 20130305
  Transmission Date: 20140127
  Serious: No
  Sender: FDA-Public Use
  Company Number: 163-21880-12111814

PATIENT
  Age: 56 Year
  Sex: Male

DRUGS (1)
  1. REVLIMID (LENALIDOMIDE) (25 MILLIGRAM, CAPSULES) [Suspect]
     Dosage: 25MG, X 4 WKS Q 6 WKS, PO
     Route: 048
     Dates: start: 20120529

REACTIONS (1)
  - Drug dose omission [None]
